FAERS Safety Report 13116476 (Version 1)
Quarter: 2017Q1

REPORT INFORMATION
  Report Type: Spontaneous
  Country: US (occurrence: US)
  Receive Date: 20170116
  Receipt Date: 20170116
  Transmission Date: 20170428
  Serious: Yes (Death, Hospitalization, Other)
  Sender: FDA-Public Use
  Company Number: US-APOTEX-2017AP005157

PATIENT
  Age: 49 Year
  Sex: Female

DRUGS (2)
  1. DILTIAZEM HYDROCHLORIDE. [Suspect]
     Active Substance: DILTIAZEM HYDROCHLORIDE
     Indication: PRODUCT USED FOR UNKNOWN INDICATION
     Dosage: 120 MG, 80 TABLETS
     Route: 048
  2. DOXYLAMINE [Suspect]
     Active Substance: DOXYLAMINE
     Indication: PRODUCT USED FOR UNKNOWN INDICATION
     Dosage: 25 MG, 192 TABLETS
     Route: 048

REACTIONS (14)
  - Bradycardia [Fatal]
  - Pneumonia [Fatal]
  - Intestinal infarction [Fatal]
  - Mental status changes [Fatal]
  - Renal failure [Fatal]
  - Acidosis [Fatal]
  - Hypoxia [Fatal]
  - Multiple organ dysfunction syndrome [Fatal]
  - Completed suicide [Fatal]
  - Shock [Fatal]
  - Rhabdomyolysis [Fatal]
  - Hypotension [Fatal]
  - Acute hepatic failure [Fatal]
  - Toxicity to various agents [Fatal]
